FAERS Safety Report 7877768-5 (Version None)
Quarter: 2011Q4

REPORT INFORMATION
  Report Type: 
  Country: None (occurrence: None)
  Receive Date: 20111031
  Receipt Date: 20111031
  Transmission Date: 20120403
  Serious: Yes (Other)
  Sender: FDA-Public Use
  Company Number: None

PATIENT
  Age: 64 Year
  Sex: Female
  Weight: 54.884 kg

DRUGS (3)
  1. CYMBALTA [Suspect]
     Indication: PAIN
     Dosage: 20 MG.
     Route: 048
     Dates: start: 20110915, end: 20111013
  2. CYMBALTA [Suspect]
     Indication: FIBROMYALGIA
     Dosage: 20 MG.
     Route: 048
     Dates: start: 20110915, end: 20111013
  3. CYMBALTA [Suspect]
     Indication: OSTEOARTHRITIS
     Dosage: 20 MG.
     Route: 048
     Dates: start: 20110915, end: 20111013

REACTIONS (17)
  - FLATULENCE [None]
  - NAUSEA [None]
  - EAR PAIN [None]
  - FEELING OF BODY TEMPERATURE CHANGE [None]
  - DYSARTHRIA [None]
  - ECONOMIC PROBLEM [None]
  - FEELING ABNORMAL [None]
  - INSOMNIA [None]
  - GAIT DISTURBANCE [None]
  - HYPERHIDROSIS [None]
  - FATIGUE [None]
  - APATHY [None]
  - FEELING COLD [None]
  - WEIGHT INCREASED [None]
  - DIZZINESS [None]
  - BALANCE DISORDER [None]
  - ACTIVITIES OF DAILY LIVING IMPAIRED [None]
